FAERS Safety Report 9640156 (Version 1)
Quarter: 2013Q4

REPORT INFORMATION
  Report Type: Spontaneous
  Country: US (occurrence: US)
  Receive Date: 20131023
  Receipt Date: 20131023
  Transmission Date: 20140711
  Serious: No
  Sender: FDA-Public Use
  Company Number: US-PFIZER INC-2013300880

PATIENT
  Sex: Female

DRUGS (2)
  1. CYTOMEL [Suspect]
     Indication: HYPOTHYROIDISM
     Dosage: UNK
  2. ARMOUR THYROID [Suspect]
     Dosage: UNK

REACTIONS (2)
  - Drug effect delayed [Unknown]
  - Depression [Unknown]
